FAERS Safety Report 9233989 (Version 1)
Quarter: 2013Q2

REPORT INFORMATION
  Report Type: Spontaneous
  Country: US (occurrence: US)
  Receive Date: 20130416
  Receipt Date: 20130416
  Transmission Date: 20140414
  Serious: Yes (Hospitalization)
  Sender: FDA-Public Use
  Company Number: US-BAYER-2013-047005

PATIENT
  Age: 34 Year
  Sex: Female
  Weight: 115.19 kg

DRUGS (5)
  1. YASMIN [Suspect]
     Indication: MENORRHAGIA
  2. YASMIN [Suspect]
     Indication: CONTRACEPTION
  3. KEFLEX [Concomitant]
     Dosage: UNK
     Route: 048
     Dates: start: 20060830
  4. IBUPROFEN [Concomitant]
     Dosage: UNK, PRN
     Route: 048
     Dates: start: 20060830
  5. LORTAB [Concomitant]
     Dosage: UNK, PRN
     Route: 048
     Dates: start: 20060830

REACTIONS (3)
  - Pulmonary embolism [None]
  - Thrombophlebitis superficial [Recovered/Resolved]
  - Deep vein thrombosis [Recovered/Resolved]
